FAERS Safety Report 15539355 (Version 2)
Quarter: 2018Q4

REPORT INFORMATION
  Report Type: Spontaneous
  Country: US (occurrence: US)
  Receive Date: 20181022
  Receipt Date: 20181105
  Transmission Date: 20190205
  Serious: Yes (Hospitalization, Other)
  Sender: FDA-Public Use
  Company Number: US-BAXTER-2018BAX025829

PATIENT

DRUGS (3)
  1. VELCADE [Suspect]
     Active Substance: BORTEZOMIB
     Indication: CHEMOTHERAPY
     Route: 065
  2. 0.9% SODIUM CHLORIDE INJECTION, USP IN MINI-BAG PLUS CONTAINER [Suspect]
     Active Substance: SODIUM CHLORIDE
     Indication: MEDICATION DILUTION
     Dosage: VELCADE 2.6 MG MIXED IN 100 ML NS BAG
     Route: 065
     Dates: start: 20181004
  3. VELCADE [Suspect]
     Active Substance: BORTEZOMIB
     Dosage: VELCADE 2.6 MG MIXED IN 100 ML NS
     Route: 065
     Dates: start: 20181004

REACTIONS (11)
  - Chest pain [Unknown]
  - Hyperhidrosis [Unknown]
  - Diastolic dysfunction [Unknown]
  - Stress cardiomyopathy [Unknown]
  - Neurodegenerative disorder [Unknown]
  - Cardiac dysfunction [Unknown]
  - Syncope [Unknown]
  - Hypotension [Unknown]
  - Cerebral atrophy [Unknown]
  - Ejection fraction decreased [Unknown]
  - Pallor [Unknown]

NARRATIVE: CASE EVENT DATE: 20181004
